FAERS Safety Report 10618385 (Version 2)
Quarter: 2015Q3

REPORT INFORMATION
  Report Type: Report from Study
  Country: US (occurrence: US)
  Receive Date: 20141202
  Receipt Date: 20150820
  Transmission Date: 20151125
  Serious: Yes (Hospitalization)
  Sender: FDA-Public Use
  Company Number: US-BIOGENIDEC-2014BI121395

PATIENT
  Age: 49 Year
  Sex: Female

DRUGS (3)
  1. TECFIDERA [Suspect]
     Active Substance: DIMETHYL FUMARATE
     Indication: MULTIPLE SCLEROSIS
     Route: 048
  2. TECFIDERA [Suspect]
     Active Substance: DIMETHYL FUMARATE
     Indication: MULTIPLE SCLEROSIS
     Route: 048
     Dates: start: 201408
  3. TECFIDERA [Suspect]
     Active Substance: DIMETHYL FUMARATE
     Indication: MULTIPLE SCLEROSIS
     Route: 048
     Dates: start: 201408, end: 201408

REACTIONS (8)
  - Sepsis [Unknown]
  - Erythema [Unknown]
  - Kidney infection [Unknown]
  - Road traffic accident [Recovered/Resolved]
  - Hypoaesthesia [Recovered/Resolved]
  - Intentional product misuse [Unknown]
  - Multiple sclerosis relapse [Unknown]
  - Flushing [Unknown]

NARRATIVE: CASE EVENT DATE: 201408
